FAERS Safety Report 15613373 (Version 2)
Quarter: 2018Q4

REPORT INFORMATION
  Report Type: Spontaneous
  Country: CA (occurrence: CA)
  Receive Date: 20181113
  Receipt Date: 20181211
  Transmission Date: 20190205
  Serious: Yes (Other)
  Sender: FDA-Public Use
  Company Number: CA-PFIZER INC-2018460895

PATIENT
  Age: 57 Year
  Sex: Female

DRUGS (2)
  1. SERTRALINE HCL [Suspect]
     Active Substance: SERTRALINE HYDROCHLORIDE
     Dosage: UNK
  2. STELARA [Concomitant]
     Active Substance: USTEKINUMAB
     Dosage: UNK UNK, CYCLIC (EVERY 4 WEEKS)
     Dates: start: 20181101

REACTIONS (6)
  - Blood iron decreased [Unknown]
  - Asthenia [Unknown]
  - Headache [Unknown]
  - Arthritis [Unknown]
  - Influenza [Unknown]
  - Malaise [Unknown]
